FAERS Safety Report 15694761 (Version 2)
Quarter: 2019Q2

REPORT INFORMATION
  Report Type: Spontaneous
  Country: JP (occurrence: JP)
  Receive Date: 20181206
  Receipt Date: 20190426
  Transmission Date: 20190711
  Serious: Yes (Other)
  Sender: FDA-Public Use
  Company Number: JP-PFIZER INC-2018496295

PATIENT
  Age: 16 Month
  Sex: Male
  Weight: 8.9 kg

DRUGS (3)
  1. CEFTRIAXONE SODIUM 0.5G PFIZER [Suspect]
     Active Substance: CEFTRIAXONE SODIUM
     Indication: BRONCHITIS
     Dosage: 300 MG, 2X/DAY
     Route: 041
     Dates: start: 20181126, end: 20181128
  2. SOLU-MEDROL [Suspect]
     Active Substance: METHYLPREDNISOLONE SODIUM SUCCINATE
     Dosage: UNK
     Dates: end: 20181128
  3. ONON [Concomitant]
     Active Substance: PRANLUKAST
     Route: 048

REACTIONS (3)
  - Metabolic alkalosis [Unknown]
  - Hypercapnia [Unknown]
  - Altered state of consciousness [Recovered/Resolved]

NARRATIVE: CASE EVENT DATE: 20181127
